FAERS Safety Report 7915076-4 (Version None)
Quarter: 2011Q4

REPORT INFORMATION
  Report Type: 
  Country: None (occurrence: None)
  Receive Date: 20111115
  Receipt Date: 20111104
  Transmission Date: 20120403
  Serious: Yes (Death, Hospitalization, Disabling)
  Sender: FDA-Public Use
  Company Number: FR-ROCHE-653101

PATIENT
  Sex: Female
  Weight: 40 kg

DRUGS (24)
  1. ACTEMRA [Suspect]
     Route: 042
  2. ACUPAN [Concomitant]
  3. LOVENOX [Concomitant]
  4. PREDNISONE [Concomitant]
  5. ACETAMINOPHEN [Concomitant]
  6. OXYCONTIN [Concomitant]
  7. LOVENOX [Concomitant]
     Dosage: TDD: 1 INJECTION. FORM: INJECTION.
  8. CALCIUM/VITAMIN D [Concomitant]
     Dosage: TDD: 100/400 UI
  9. CEFTAZIDIME SODIUM [Concomitant]
     Dates: start: 20090627, end: 20091105
  10. SIMVASTATIN [Concomitant]
  11. METHOTREXATE [Suspect]
     Indication: RHEUMATOID ARTHRITIS
     Dosage: DOSAGE FORM: PILL, DOSE BLINDED. PERMANENTLY DISCONTINUED : 29 SEP 2009
     Route: 048
     Dates: start: 20090702, end: 20090929
  12. POLYETHYLENE GLYCOL [Concomitant]
  13. CALCIUM CARBONATE [Concomitant]
     Dosage: TDD: 1 BAG
  14. COLD MEDICATION NOS [Concomitant]
     Dosage: DRUG REPORTED AS: DEKERYL.
  15. ACTEMRA [Suspect]
     Indication: RHEUMATOID ARTHRITIS
     Dosage: FORM: LIQUIDE.
     Route: 042
     Dates: start: 20090702, end: 20110929
  16. ACTEMRA [Suspect]
     Dosage: LAST DOSE PRIOR TO SAE: 01 SEPTEMBER 2009, PERMANENTLY DISCONTINUED.
     Route: 042
     Dates: start: 20090901, end: 20090929
  17. LOVENOX [Concomitant]
  18. ACETAMINOPHEN [Concomitant]
  19. DIPROSONE [Concomitant]
     Dosage: DAILY DOSE: 1 APPLICATION.
  20. FORLAX (FRANCE) [Concomitant]
     Dates: start: 20090618
  21. OXYCODONE HCL [Concomitant]
  22. OXYCODONE HCL [Concomitant]
  23. XYZAL [Concomitant]
  24. CALCIUM [Concomitant]

REACTIONS (6)
  - ANAEMIA [None]
  - RHEUMATOID ARTHRITIS [None]
  - PAIN [None]
  - BENIGN LUNG NEOPLASM [None]
  - SEPSIS [None]
  - LUNG NEOPLASM [None]
